FAERS Safety Report 10238424 (Version 1)
Quarter: 2014Q2

REPORT INFORMATION
  Report Type: Spontaneous
  Country: CN (occurrence: None)
  Receive Date: 20140612
  Receipt Date: 20140612
  Transmission Date: 20141212
  Serious: Yes (Other)
  Sender: FDA-Public Use
  Company Number: FK201402231

PATIENT
  Age: 74 Year
  Sex: Male

DRUGS (1)
  1. INTRALIPID (LIPID EMULSION) (LIPID EMULSION) [Suspect]
     Indication: NUTRITIONAL SUPPLEMENTATION
     Route: 041
     Dates: start: 20131123, end: 20131124

REACTIONS (5)
  - Vomiting [None]
  - Pyrexia [None]
  - Chills [None]
  - Hyperpyrexia [None]
  - Nausea [None]
